FAERS Safety Report 18694925 (Version 1)
Quarter: 2021Q1

REPORT INFORMATION
  Report Type: Spontaneous
  Country: US (occurrence: US)
  Receive Date: 20210101
  Receipt Date: 20210101
  Transmission Date: 20210419
  Serious: No
  Sender: FDA-Public Use
  Company Number: None

PATIENT
  Age: 75 Year
  Sex: Female
  Weight: 76.05 kg

DRUGS (14)
  1. PALONOSETRON 0.25MG [Concomitant]
     Dates: start: 20200724
  2. KEYTRUDA [Suspect]
     Active Substance: PEMBROLIZUMAB
     Indication: NON-SMALL CELL LUNG CANCER
     Dosage: ?          OTHER FREQUENCY:EVERY 3 WEEKS;?
     Route: 042
     Dates: start: 20200427, end: 20200730
  3. SINGULAIR [Concomitant]
     Active Substance: MONTELUKAST SODIUM
     Dates: start: 20150101
  4. PREDNISOME 20MG [Concomitant]
     Dates: start: 20150101
  5. ZOLOFT [Concomitant]
     Active Substance: SERTRALINE HYDROCHLORIDE
     Dates: start: 20150101
  6. SPRIVIA 18MCG [Concomitant]
     Dates: start: 20150101
  7. FOSAPREPITANT 150MG [Concomitant]
     Dates: start: 20200724
  8. ZOCOR [Concomitant]
     Active Substance: SIMVASTATIN
     Dates: start: 20150101
  9. LEVOTHYROXINE 125MCG [Concomitant]
     Active Substance: LEVOTHYROXINE SODIUM
     Dates: start: 20150101
  10. DEXILANT [Concomitant]
     Active Substance: DEXLANSOPRAZOLE
     Dates: start: 20150101
  11. ALBUTEROL INHALATION [Concomitant]
     Active Substance: ALBUTEROL
     Dates: start: 20150101
  12. DEXAMETHASONE 20MG [Concomitant]
     Active Substance: DEXAMETHASONE
     Dates: start: 20200724
  13. CARBOPLATIN 510MG [Concomitant]
     Dates: start: 20200427
  14. VITAMIN D 5000 UNITS [Concomitant]
     Dates: start: 20150101

REACTIONS (3)
  - Hypoaesthesia [None]
  - Paraesthesia [None]
  - Bone pain [None]

NARRATIVE: CASE EVENT DATE: 20200724
